FAERS Safety Report 12226373 (Version 2)
Quarter: 2016Q2

REPORT INFORMATION
  Report Type: Spontaneous
  Country: JP (occurrence: JP)
  Receive Date: 20160331
  Receipt Date: 20160609
  Transmission Date: 20160815
  Serious: Yes (Other)
  Sender: FDA-Public Use
  Company Number: JP-ELI_LILLY_AND_COMPANY-JP201603002042

PATIENT
  Age: 63 Year
  Sex: Female
  Weight: 35.9 kg

DRUGS (2)
  1. CYRAMZA [Suspect]
     Active Substance: RAMUCIRUMAB
     Indication: GASTRIC CANCER RECURRENT
     Dosage: 312 MG, DAY1, DAY15, PER 28 DAYS
     Route: 042
     Dates: start: 20150708, end: 20150918
  2. PACLITAXEL. [Concomitant]
     Active Substance: PACLITAXEL
     Indication: GASTRIC CANCER
     Dosage: 104 MG, DAY1, DAY8, DAY15, PER 28 DAYS
     Route: 042
     Dates: start: 20150708, end: 20150918

REACTIONS (3)
  - Vaginal haemorrhage [Recovered/Resolved]
  - Portal vein thrombosis [Unknown]
  - Malignant neoplasm progression [Unknown]

NARRATIVE: CASE EVENT DATE: 20150928
